FAERS Safety Report 16937650 (Version 3)
Quarter: 2019Q4

REPORT INFORMATION
  Report Type: Spontaneous
  Country: PT (occurrence: PT)
  Receive Date: 20191019
  Receipt Date: 20191102
  Transmission Date: 20200122
  Serious: Yes (Disabling, Other)
  Sender: FDA-Public Use
  Company Number: PT-AUROBINDO-AUR-APL-2019-067607

PATIENT
  Age: 61 Year
  Sex: Male

DRUGS (9)
  1. COLECALCIFEROL [Suspect]
     Active Substance: CHOLECALCIFEROL
     Indication: OSTEOPOROSIS
     Dosage: 400 INTERNATIONAL UNIT, DAILY
     Route: 065
     Dates: start: 201501
  2. ALENDRONIC ACID [Suspect]
     Active Substance: ALENDRONIC ACID
     Indication: PATHOLOGICAL FRACTURE PROPHYLAXIS
  3. CALCIUM CARBONATE. [Suspect]
     Active Substance: CALCIUM CARBONATE
     Indication: OSTEOPOROTIC FRACTURE
  4. COLECALCIFEROL [Suspect]
     Active Substance: CHOLECALCIFEROL
     Indication: OSTEOPOROTIC FRACTURE
  5. CALCIUM CARBONATE. [Suspect]
     Active Substance: CALCIUM CARBONATE
     Indication: PATHOLOGICAL FRACTURE PROPHYLAXIS
  6. ALENDRONIC ACID [Suspect]
     Active Substance: ALENDRONIC ACID
     Indication: OSTEOPOROTIC FRACTURE
  7. COLECALCIFEROL [Suspect]
     Active Substance: CHOLECALCIFEROL
     Indication: PATHOLOGICAL FRACTURE PROPHYLAXIS
  8. CALCIUM CARBONATE. [Suspect]
     Active Substance: CALCIUM CARBONATE
     Indication: OSTEOPOROSIS
     Dosage: 1500 MILLIGRAM, DAILY
     Route: 065
     Dates: start: 201501
  9. ALENDRONIC ACID [Suspect]
     Active Substance: ALENDRONIC ACID
     Indication: OSTEOPOROSIS
     Dosage: 70 MILLIGRAM, EVERY WEEK
     Route: 065
     Dates: start: 201501

REACTIONS (3)
  - Osteoporotic fracture [Unknown]
  - Off label use [Unknown]
  - Atypical fracture [Unknown]

NARRATIVE: CASE EVENT DATE: 201811
